FAERS Safety Report 11143234 (Version 1)
Quarter: 2015Q2

REPORT INFORMATION
  Report Type: Spontaneous
  Country: US (occurrence: US)
  Receive Date: 20150526
  Receipt Date: 20150526
  Transmission Date: 20150821
  Serious: No
  Sender: FDA-Public Use
  Company Number: US-NOVEN PHARMACEUTICALS, INC.-US2015000092

PATIENT
  Age: 56 Year
  Sex: Female
  Weight: 52.15 kg

DRUGS (1)
  1. MINIVELLE [Suspect]
     Active Substance: ESTRADIOL
     Indication: SEXUAL DYSFUNCTION
     Dosage: 0.05 MG, UNK
     Route: 062

REACTIONS (2)
  - Weight increased [Unknown]
  - Drug prescribing error [Unknown]
